FAERS Safety Report 5572969-3 (Version None)
Quarter: 2007Q4

REPORT INFORMATION
  Report Type: 
  Country: None (occurrence: None)
  Receive Date: 20071224
  Receipt Date: 20071220
  Transmission Date: 20080405
  Serious: Yes (Hospitalization)
  Sender: FDA-Public Use
  Company Number: DE-BRISTOL-MYERS SQUIBB COMPANY-14020960

PATIENT
  Age: 53 Year
  Sex: Female
  Weight: 79 kg

DRUGS (5)
  1. CYCLOPHOSPHAMIDE [Suspect]
     Indication: BREAST CANCER
     Route: 042
     Dates: start: 20071128, end: 20071128
  2. PACLITAXEL [Suspect]
     Indication: BREAST CANCER
     Dosage: PREVIOUS THERAPY DATES: 11-SEP-2007 AND 25-SEP-2007.
     Route: 042
     Dates: start: 20070911, end: 20071009
  3. EPIRUBICIN [Suspect]
     Indication: BREAST CANCER
     Route: 042
     Dates: start: 20070731, end: 20070828
  4. ARANESP [Concomitant]
     Route: 058
     Dates: start: 20070731
  5. NEULASTA [Concomitant]
     Route: 058
     Dates: start: 20070801

REACTIONS (2)
  - PANCYTOPENIA [None]
  - PYREXIA [None]
